FAERS Safety Report 6558034-7 (Version None)
Quarter: 2010Q1

REPORT INFORMATION
  Report Type: 
  Country: None (occurrence: None)
  Receive Date: 20100129
  Receipt Date: 20100120
  Transmission Date: 20100710
  Serious: Yes (Death)
  Sender: FDA-Public Use
  Company Number: JP-ROCHE-682259

PATIENT
  Age: 75 Year
  Sex: Female

DRUGS (4)
  1. HERCEPTIN [Suspect]
     Indication: INFLAMMATORY CARCINOMA OF THE BREAST
     Route: 041
  2. TAXOTERE [Concomitant]
     Route: 041
  3. TS-1 [Concomitant]
     Route: 048
  4. XELODA [Concomitant]
     Route: 048

REACTIONS (2)
  - HEPATIC FAILURE [None]
  - METASTASES TO PANCREAS [None]
